FAERS Safety Report 14617189 (Version 1)
Quarter: 2018Q1

REPORT INFORMATION
  Report Type: Spontaneous
  Country: IT (occurrence: IT)
  Receive Date: 20180309
  Receipt Date: 20180309
  Transmission Date: 20180509
  Serious: Yes (Hospitalization)
  Sender: FDA-Public Use
  Company Number: IT-AUROBINDO-AUR-APL-2018-012772

PATIENT
  Age: 49 Year
  Sex: Female

DRUGS (6)
  1. QUETIAPINE. [Suspect]
     Active Substance: QUETIAPINE
     Indication: INTENTIONAL SELF-INJURY
     Dosage: 1700 MILLIGRAM
     Route: 048
     Dates: start: 20160816, end: 20160816
  2. RIVOTRIL [Suspect]
     Active Substance: CLONAZEPAM
     Dosage: UNK
  3. LEVOPRAID                          /00314301/ [Concomitant]
     Active Substance: SULPIRIDE
     Indication: PRODUCT USED FOR UNKNOWN INDICATION
     Dosage: 1 DOSAGE FORM
     Route: 048
  4. GABAPENTIN MYLAN [Suspect]
     Active Substance: GABAPENTIN
     Indication: INTENTIONAL SELF-INJURY
     Dosage: 34 DOSAGE FORM
     Route: 048
     Dates: start: 20160816, end: 20160816
  5. CITALOPRAM [Concomitant]
     Active Substance: CITALOPRAM HYDROBROMIDE
     Indication: PRODUCT USED FOR UNKNOWN INDICATION
     Dosage: 15 MILLIGRAM
  6. RIVOTRIL [Suspect]
     Active Substance: CLONAZEPAM
     Indication: INTENTIONAL SELF-INJURY
     Dosage: 8.5 MILLIGRAM
     Route: 048
     Dates: start: 20160816, end: 20160816

REACTIONS (4)
  - Extrapyramidal disorder [Recovering/Resolving]
  - Drug abuse [Recovering/Resolving]
  - Tachycardia [Recovering/Resolving]
  - Sopor [Recovering/Resolving]

NARRATIVE: CASE EVENT DATE: 20160816
